FAERS Safety Report 9338724 (Version 1)
Quarter: 2013Q2

REPORT INFORMATION
  Report Type: Spontaneous
  Country: US (occurrence: US)
  Receive Date: 20130610
  Receipt Date: 20130610
  Transmission Date: 20140414
  Serious: No
  Sender: FDA-Public Use
  Company Number: US-BAYER-2013-069947

PATIENT
  Sex: 0

DRUGS (3)
  1. ALEVE CAPLET [Suspect]
  2. IBUPROFEN [Concomitant]
     Dosage: 800 MG, UNK
  3. EXCEDRIN MIGRAINE [Concomitant]

REACTIONS (1)
  - Drug ineffective [None]
